FAERS Safety Report 24444650 (Version 1)
Quarter: 2024Q4

REPORT INFORMATION
  Report Type: Spontaneous
  Country: US (occurrence: None)
  Receive Date: 20241015
  Receipt Date: 20241015
  Transmission Date: 20250115
  Serious: Yes (Hospitalization)
  Sender: Public
  Company Number: None

PATIENT
  Age: 78 Year
  Sex: Male
  Weight: 92 kg

DRUGS (2)
  1. ZOLPIDEM TARTRATE [Suspect]
     Active Substance: ZOLPIDEM TARTRATE
     Indication: Insomnia
     Dosage: FREQUENCY : AT BEDTIME;?
     Route: 048
     Dates: end: 20240530
  2. SERTRALINE [Suspect]
     Active Substance: SERTRALINE HYDROCHLORIDE

REACTIONS (6)
  - Agitation [None]
  - Hallucination, auditory [None]
  - Paranoia [None]
  - Aggression [None]
  - Insomnia [None]
  - Myalgia [None]

NARRATIVE: CASE EVENT DATE: 20240525
